FAERS Safety Report 12757841 (Version 1)
Quarter: 2016Q3

REPORT INFORMATION
  Report Type: Spontaneous
  Country: US (occurrence: US)
  Receive Date: 20160919
  Receipt Date: 20160919
  Transmission Date: 20161109
  Serious: No
  Sender: FDA-Public Use
  Company Number: US-PFIZER INC-2016434829

PATIENT
  Age: 71 Year
  Sex: Female

DRUGS (1)
  1. CELECOXIB. [Suspect]
     Active Substance: CELECOXIB
     Indication: ARTHRITIS
     Dosage: UNK

REACTIONS (10)
  - Confusional state [Recovered/Resolved]
  - Fluid retention [Recovering/Resolving]
  - Activities of daily living impaired [Recovering/Resolving]
  - Swelling [Recovering/Resolving]
  - Gait disturbance [Recovering/Resolving]
  - Emotional distress [Recovering/Resolving]
  - Vision blurred [Recovering/Resolving]
  - Pain [Recovering/Resolving]
  - Walking aid user [Recovered/Resolved]
  - Wheelchair user [Recovering/Resolving]
